FAERS Safety Report 9606473 (Version 2)
Quarter: 2013Q4

REPORT INFORMATION
  Report Type: Spontaneous
  Country: US (occurrence: US)
  Receive Date: 20131008
  Receipt Date: 20131008
  Transmission Date: 20140711
  Serious: No
  Sender: FDA-Public Use
  Company Number: US-AMGEN-USASP2013053460

PATIENT
  Age: 70 Year
  Sex: Female
  Weight: 69.84 kg

DRUGS (23)
  1. PROLIA [Suspect]
     Indication: PRODUCT USED FOR UNKNOWN INDICATION
     Dosage: 60 MG, Q6MO
     Route: 058
     Dates: start: 20120828
  2. ACETAMINOPHEN W/HYDROCODONE [Concomitant]
     Dosage: UNK
     Dates: start: 20091102
  3. MEDROL                             /00049601/ [Concomitant]
     Dosage: UNK
     Dates: start: 20130514
  4. ALLEGRA [Concomitant]
     Dosage: UNK UNK, QD
     Route: 048
  5. CALTRATE +D                        /01483701/ [Concomitant]
     Dosage: UNK UNK, QD
     Route: 048
  6. CLINDAMYCIN PHOSPHATE [Concomitant]
     Dosage: UNK UNK, QD
     Route: 061
  7. COREG [Concomitant]
     Dosage: UNK UNK, QD
     Route: 048
  8. COUMADIN                           /00014802/ [Concomitant]
     Dosage: UNK UNK, QD
     Route: 048
  9. COZAAR [Concomitant]
     Dosage: 25 MG, BID
     Route: 048
  10. EFFEXOR [Concomitant]
     Dosage: UNK UNK, QD
     Route: 048
  11. FUROSEMIDE [Concomitant]
     Dosage: UNK UNK, QD
     Route: 048
  12. LANSOPRAZOLE [Concomitant]
     Dosage: 30 MG, QD
     Route: 048
  13. PACERONE [Concomitant]
     Dosage: 200 MG, QD
     Route: 048
  14. POTASSIUM CHLORIDE [Concomitant]
     Dosage: UNK UNK, BID
     Route: 048
  15. PRILOSEC                           /00661201/ [Concomitant]
     Dosage: 20 MG, QD
     Route: 048
  16. ACETAMINOPHEN [Concomitant]
     Dosage: 650 MG, QD
     Dates: start: 20100202
  17. DEXAMETHASONE SODIUM PHOSPHATE [Concomitant]
     Dosage: 10 MG, QD
     Dates: start: 20100202
  18. DIPHENHYDRAMINE HCL [Concomitant]
     Dosage: 25 MG, QD
     Dates: start: 20100202
  19. INFED [Concomitant]
     Dosage: 1500 MG, QD
     Dates: start: 20100202
  20. INFLUENZA VIRUS VACCINE [Concomitant]
     Dosage: 0.5 UNK, UNK
     Route: 030
     Dates: start: 20091005
  21. IRON DEXTRAN [Concomitant]
     Dosage: 25 MG, QD
     Dates: start: 20100202
  22. RANITIDINE HCL [Concomitant]
     Dosage: 50 MG, QD
     Dates: start: 20100202
  23. SODIUM CHLORIDE [Concomitant]
     Dosage: 50 ML OF 0.9 %, QD
     Route: 042

REACTIONS (8)
  - Rash [Recovered/Resolved]
  - Blister [Unknown]
  - Headache [Unknown]
  - Neck pain [Unknown]
  - Muscle spasms [Unknown]
  - Pruritus [Not Recovered/Not Resolved]
  - Tardive dyskinesia [Unknown]
  - Blood calcium decreased [Unknown]
